FAERS Safety Report 4968329-6 (Version None)
Quarter: 2006Q2

REPORT INFORMATION
  Report Type: 
  Country: None (occurrence: None)
  Receive Date: 20060405
  Receipt Date: 20060328
  Transmission Date: 20061013
  Serious: No
  Sender: FDA-Public Use
  Company Number: FR-2004-031176

PATIENT
  Age: 35 Year
  Sex: Female

DRUGS (1)
  1. MIRENA [Suspect]
     Dosage: 20 UG, CONT, INTRA-UTERINE
     Route: 015
     Dates: start: 20020101, end: 20040101

REACTIONS (3)
  - ADENOMYOSIS [None]
  - METRORRHAGIA [None]
  - POST PROCEDURAL COMPLICATION [None]
